FAERS Safety Report 7483645-4 (Version None)
Quarter: 2011Q2

REPORT INFORMATION
  Report Type: 
  Country: None (occurrence: None)
  Receive Date: 20110517
  Receipt Date: 20110502
  Transmission Date: 20111010
  Serious: Yes (Hospitalization)
  Sender: FDA-Public Use
  Company Number: FR-JNJFOC-20110500942

PATIENT
  Sex: Male
  Weight: 35.8 kg

DRUGS (4)
  1. HUMIRA [Concomitant]
     Dates: start: 20091216
  2. AZATHIOPRINE [Concomitant]
  3. INFLIXIMAB, RECOMBINANT [Suspect]
     Indication: CROHN'S DISEASE
     Route: 042
     Dates: start: 20060926, end: 20061113
  4. HUMIRA [Concomitant]
     Dates: start: 20100216

REACTIONS (2)
  - COLONIC STENOSIS [None]
  - CONDITION AGGRAVATED [None]
